FAERS Safety Report 9813092 (Version 2)
Quarter: 2014Q1

REPORT INFORMATION
  Report Type: Spontaneous
  Country: JP (occurrence: JP)
  Receive Date: 20140113
  Receipt Date: 20140121
  Transmission Date: 20141002
  Serious: Yes (Other)
  Sender: FDA-Public Use
  Company Number: JP-JNJFOC-20140104904

PATIENT
  Age: 59 Year
  Sex: Female
  Weight: 43 kg

DRUGS (7)
  1. DOXORUBICIN HYDROCHLORIDE [Suspect]
     Indication: PLASMA CELL MYELOMA
     Route: 042
     Dates: start: 20080101, end: 2008
  2. DOXORUBICIN HYDROCHLORIDE [Suspect]
     Indication: PLASMA CELL MYELOMA
     Route: 065
     Dates: start: 20080101, end: 2008
  3. VINCRISTINE SULFATE [Suspect]
     Indication: PLASMA CELL MYELOMA
     Route: 065
     Dates: start: 20080101, end: 2008
  4. DEXAMETHASONE [Suspect]
     Indication: PLASMA CELL MYELOMA
     Route: 065
     Dates: start: 20080101, end: 2008
  5. MELPHALAN [Suspect]
     Indication: PLASMA CELL MYELOMA
     Route: 065
     Dates: start: 20081001, end: 200810
  6. LENALIDOMIDE [Concomitant]
     Indication: PLASMA CELL MYELOMA
     Route: 048
     Dates: start: 201012, end: 201105
  7. DEXAMETHASONE [Concomitant]
     Indication: PLASMA CELL MYELOMA
     Route: 048
     Dates: start: 201006, end: 201007

REACTIONS (3)
  - Neuropathy peripheral [Recovered/Resolved]
  - Platelet count decreased [Recovered/Resolved]
  - White blood cell count decreased [Recovered/Resolved]
